FAERS Safety Report 21939523 (Version 1)
Quarter: 2023Q1

REPORT INFORMATION
  Report Type: Report from Study
  Country: US (occurrence: US)
  Receive Date: 20230201
  Receipt Date: 20230201
  Transmission Date: 20230418
  Serious: No
  Sender: FDA-Public Use
  Company Number: US-EXELIXIS-CABO-21047686

PATIENT
  Age: 77 Year
  Sex: Male
  Weight: 79.365 kg

DRUGS (11)
  1. CABOMETYX [Suspect]
     Active Substance: CABOZANTINIB S-MALATE
     Indication: Thyroid cancer
     Dosage: 20 MG
     Route: 048
  2. CABOMETYX [Suspect]
     Active Substance: CABOZANTINIB S-MALATE
     Dosage: 40 MG, QD
     Route: 048
     Dates: start: 20211022
  3. CABOMETYX [Suspect]
     Active Substance: CABOZANTINIB S-MALATE
     Dosage: 60 MG, QD
     Route: 048
  4. CABOMETYX [Suspect]
     Active Substance: CABOZANTINIB S-MALATE
     Dosage: 60 MG, QOD
     Route: 048
     Dates: end: 20221026
  5. DENOSUMAB [Suspect]
     Active Substance: DENOSUMAB
     Indication: Product used for unknown indication
     Dosage: UNK, Q4WEEKS
  6. KAOPECTATE [Concomitant]
     Active Substance: BISMUTH SUBSALICYLATE
     Dosage: UNK
  7. MINERALS\VITAMINS [Concomitant]
     Active Substance: MINERALS\VITAMINS
  8. IRON [Concomitant]
     Active Substance: IRON
  9. VITAMIN C [Concomitant]
     Active Substance: ASCORBIC ACID
  10. LANTUS [Concomitant]
     Active Substance: INSULIN GLARGINE
  11. HUMALOG [Concomitant]
     Active Substance: INSULIN LISPRO

REACTIONS (28)
  - Balance disorder [Unknown]
  - Chest pain [Unknown]
  - Malaise [Unknown]
  - Regurgitation [Recovered/Resolved]
  - Haematocrit decreased [Unknown]
  - Eosinophil count increased [Unknown]
  - Red blood cell count decreased [Unknown]
  - Blood urea increased [Unknown]
  - Blood chloride increased [Unknown]
  - Protein total decreased [Unknown]
  - Glomerular filtration rate decreased [Unknown]
  - Blood calcium decreased [Unknown]
  - Pruritus [Unknown]
  - Blood glucose decreased [Unknown]
  - Blood creatinine increased [Unknown]
  - Blood albumin decreased [Unknown]
  - Platelet count decreased [Unknown]
  - Haemoglobin decreased [Unknown]
  - Abdominal pain upper [Unknown]
  - Diarrhoea [Recovered/Resolved]
  - Fatigue [Unknown]
  - Nausea [Unknown]
  - Bone cancer [Unknown]
  - Skin lesion [Unknown]
  - Blood calcitonin increased [Unknown]
  - Blood chromogranin A increased [Unknown]
  - Carcinoembryonic antigen increased [Unknown]
  - Inappropriate schedule of product administration [Unknown]

NARRATIVE: CASE EVENT DATE: 20211227
